FAERS Safety Report 11632960 (Version 1)
Quarter: 2015Q4

REPORT INFORMATION
  Report Type: Spontaneous
  Country: AU (occurrence: AU)
  Receive Date: 20151015
  Receipt Date: 20151015
  Transmission Date: 20160304
  Serious: Yes (Other)
  Sender: FDA-Public Use
  Company Number: AU-BAYER-2015-437360

PATIENT
  Age: 51 Year
  Sex: Female

DRUGS (1)
  1. MIRENA [Suspect]
     Active Substance: LEVONORGESTREL
     Dosage: 20 MCG/24HR, CONT
     Route: 015
     Dates: start: 2015

REACTIONS (6)
  - Bipolar I disorder [None]
  - Breast tenderness [None]
  - Depression [None]
  - Memory impairment [None]
  - Impaired work ability [None]
  - Nervousness [None]

NARRATIVE: CASE EVENT DATE: 2015
